FAERS Safety Report 19596116 (Version 1)
Quarter: 2021Q3

REPORT INFORMATION
  Report Type: Spontaneous
  Country: US (occurrence: US)
  Receive Date: 20210723
  Receipt Date: 20210723
  Transmission Date: 20211014
  Serious: Yes (Other)
  Sender: FDA-Public Use
  Company Number: US-SUN PHARMACEUTICAL INDUSTRIES LTD-2021R1-304724

PATIENT
  Age: 59 Year
  Sex: Male

DRUGS (3)
  1. PREDNISONE. [Suspect]
     Active Substance: PREDNISONE
     Indication: COVID-19 PNEUMONIA
     Dosage: 60 MILLIGRAM, DAILY
     Route: 065
  2. METHYLPREDNISOLONE. [Suspect]
     Active Substance: METHYLPREDNISOLONE
     Indication: COVID-19 PNEUMONIA
     Dosage: 1 GRAM, DAILY
     Route: 042
  3. REMDESIVIR. [Concomitant]
     Active Substance: REMDESIVIR

REACTIONS (1)
  - Condition aggravated [Unknown]
